FAERS Safety Report 8760051 (Version 1)
Quarter: 2012Q4

REPORT INFORMATION
  Report Type: Spontaneous
  Country: US (occurrence: None)
  Receive Date: 20120829
  Receipt Date: 20120829
  Transmission Date: 20130627
  Serious: Yes (Hospitalization)
  Sender: FDA-Public Use
  Company Number: None

PATIENT
  Age: 39 Year
  Sex: Female
  Weight: 97.3 kg

DRUGS (10)
  1. BACTRIM DS [Suspect]
     Indication: PYELONEPHRITIS
     Route: 048
     Dates: start: 20120622, end: 20120623
  2. LISINOPRIL [Suspect]
     Indication: HYPERTENSION
     Route: 048
     Dates: start: 20120201
  3. DECLOFENAC [Concomitant]
  4. INSULIN GLARGINE [Concomitant]
  5. INSULIN LISPRO [Concomitant]
  6. ORTHO EVRA [Concomitant]
  7. LISINOPRIL-HYDROCHLOROTHIAZIDE [Concomitant]
  8. OXYCODONE IR [Concomitant]
  9. PRAVASTATIN [Concomitant]
  10. TAMULOSIN [Concomitant]

REACTIONS (4)
  - Rash erythematous [None]
  - Vomiting [None]
  - Nephrolithiasis [None]
  - Angioedema [None]
